FAERS Safety Report 9928755 (Version 3)
Quarter: 2014Q2

REPORT INFORMATION
  Report Type: Spontaneous
  Country: US (occurrence: None)
  Receive Date: 20140225
  Receipt Date: 20140425
  Transmission Date: 20141212
  Serious: Yes (Other)
  Sender: FDA-Public Use
  Company Number: 2014-US-001624

PATIENT
  Age: 22 Year
  Sex: Male
  Weight: 72.6 kg

DRUGS (4)
  1. XYREM [Suspect]
     Indication: NARCOLEPSY
     Dosage: DOSE ADJUSTMENTS
     Route: 048
     Dates: start: 201210, end: 2012
  2. PROVIGIL ( MODAFINIL) [Concomitant]
  3. ZOLOFT ( SERTRALINE HYDROCHLORIDE) ( SERTRALINE HYDROCHLORIDE) [Concomitant]
  4. ATIVAN ( LORAZEPAM) [Concomitant]

REACTIONS (3)
  - Obsessive-compulsive disorder [None]
  - Tourette^s disorder [None]
  - Hunger [None]
